FAERS Safety Report 20480411 (Version 2)
Quarter: 2022Q1

REPORT INFORMATION
  Report Type: Report from Study
  Country: HK (occurrence: HK)
  Receive Date: 20220216
  Receipt Date: 20220302
  Transmission Date: 20220423
  Serious: Yes (Hospitalization)
  Sender: FDA-Public Use
  Company Number: HK-PFIZER INC-202200224049

PATIENT
  Age: 45 Year
  Sex: Male
  Weight: 81.1 kg

DRUGS (5)
  1. AXITINIB [Suspect]
     Active Substance: AXITINIB
     Indication: Nasopharyngeal cancer metastatic
     Dosage: 5 MG, 2X/DAY
     Route: 048
     Dates: start: 20210716, end: 20210804
  2. AXITINIB [Suspect]
     Active Substance: AXITINIB
     Dosage: 3 MG, 2X/DAY
     Route: 048
     Dates: start: 20210805, end: 20211006
  3. AXITINIB [Suspect]
     Active Substance: AXITINIB
     Dosage: 2 MG, 2X/DAY
     Route: 048
     Dates: start: 20211223
  4. AVELUMAB [Suspect]
     Active Substance: AVELUMAB
     Indication: Nasopharyngeal cancer metastatic
     Dosage: 760 MG, CYCLIC (Q2W)
     Route: 042
     Dates: start: 20210716, end: 20210924
  5. THYROXINE [Concomitant]
     Active Substance: LEVOTHYROXINE
     Indication: Hypothyroidism

REACTIONS (1)
  - Malaise [Recovered/Resolved]

NARRATIVE: CASE EVENT DATE: 20220207
